FAERS Safety Report 13669137 (Version 2)
Quarter: 2017Q3

REPORT INFORMATION
  Report Type: Spontaneous
  Country: US (occurrence: US)
  Receive Date: 20170620
  Receipt Date: 20170717
  Transmission Date: 20171127
  Serious: No
  Sender: FDA-Public Use
  Company Number: US-009507513-1706USA008736

PATIENT

DRUGS (1)
  1. EMEND (FOSAPREPITANT DIMEGLUMINE) [Suspect]
     Active Substance: FOSAPREPITANT DIMEGLUMINE
     Route: 042

REACTIONS (5)
  - Back pain [Unknown]
  - Pain in extremity [Unknown]
  - Erythema [Unknown]
  - Swelling [Unknown]
  - Chest discomfort [Unknown]
